FAERS Safety Report 5535377-7 (Version None)
Quarter: 2007Q4

REPORT INFORMATION
  Report Type: 
  Country: None (occurrence: None)
  Receive Date: 20071206
  Receipt Date: 20071124
  Transmission Date: 20080405
  Serious: Yes (Other)
  Sender: FDA-Public Use
  Company Number: US-PFIZER INC-2007087933

PATIENT
  Sex: Female
  Weight: 68.9 kg

DRUGS (5)
  1. DETROL LA [Suspect]
     Indication: URINARY INCONTINENCE
     Route: 048
     Dates: start: 20070913, end: 20070923
  2. XANAX [Concomitant]
  3. ZANTAC [Concomitant]
  4. ZONEGRAN [Concomitant]
  5. KLONOPIN [Concomitant]
     Indication: CONVULSION

REACTIONS (3)
  - BLOOD GLUCOSE INCREASED [None]
  - PRURITUS [None]
  - RASH [None]
